FAERS Safety Report 14326614 (Version 2)
Quarter: 2018Q1

REPORT INFORMATION
  Report Type: Spontaneous
  Country: US (occurrence: US)
  Receive Date: 20171227
  Receipt Date: 20180108
  Transmission Date: 20180509
  Serious: No
  Sender: FDA-Public Use
  Company Number: US-TEVA-2017-US-836590

PATIENT
  Sex: Female

DRUGS (1)
  1. DICLOFENAC W/MISOPROSTOL [Suspect]
     Active Substance: DICLOFENAC SODIUM\MISOPROSTOL
     Indication: PAIN
     Dosage: DOSE STRENGTH: 75/0.2 MG. THE PATIENT WAS ADVISED TO TAKE 2 TABLETS/DAY OR JUST ONE TABLET A DAY.

REACTIONS (1)
  - Drug ineffective [Unknown]
